FAERS Safety Report 16744842 (Version 1)
Quarter: 2019Q4

REPORT INFORMATION
  Report Type: Spontaneous
  Country: US (occurrence: US)
  Receive Date: 20190826
  Receipt Date: 20190826
  Transmission Date: 20200122
  Serious: Yes (Life-Threatening, Hospitalization, Disabling)
  Sender: FDA-Public Use
  Company Number: None

PATIENT
  Age: 58 Year
  Sex: Female
  Weight: 83.25 kg

DRUGS (8)
  1. FLUOROURACIL INJECTION, USP [Suspect]
     Active Substance: FLUOROURACIL
     Indication: BREAST CANCER
     Dosage: ?          QUANTITY:1 INJECTION(S);OTHER FREQUENCY:ONCE PER WEEK;OTHER ROUTE:INFUSED INTO A CHEST PORT?
     Dates: start: 20181126, end: 20190329
  2. MULTIVITAMIN [Concomitant]
     Active Substance: VITAMINS
  3. C-PAP MACHINE [Concomitant]
     Active Substance: DEVICE
  4. LETROZOLE. [Concomitant]
     Active Substance: LETROZOLE
  5. CALCIUM [Concomitant]
     Active Substance: CALCIUM
  6. VITAMIN D3 [Concomitant]
     Active Substance: CHOLECALCIFEROL
  7. GLUCOSAMINE [Concomitant]
     Active Substance: GLUCOSAMINE
  8. OMEPRAZOLE. [Concomitant]
     Active Substance: OMEPRAZOLE

REACTIONS (10)
  - Acute respiratory failure [None]
  - Tinnitus [None]
  - Product contamination physical [None]
  - Leukocyturia [None]
  - Lung consolidation [None]
  - Recalled product administered [None]
  - Lung opacity [None]
  - Pneumonitis [None]
  - Deafness [None]
  - Cellulitis [None]

NARRATIVE: CASE EVENT DATE: 20190408
